FAERS Safety Report 13101128 (Version 2)
Quarter: 2017Q1

REPORT INFORMATION
  Report Type: Spontaneous
  Country: US (occurrence: US)
  Receive Date: 20170110
  Receipt Date: 20170327
  Transmission Date: 20170428
  Serious: Yes (Hospitalization, Other)
  Sender: FDA-Public Use
  Company Number: US-PFIZER INC-2017005971

PATIENT
  Age: 85 Year
  Sex: Male
  Weight: 71.67 kg

DRUGS (13)
  1. REVATIO [Suspect]
     Active Substance: SILDENAFIL CITRATE
     Indication: PULMONARY HYPERTENSION
     Dosage: 20 MG, 2X/DAY
     Dates: start: 2012
  2. DIGITEK [Concomitant]
     Active Substance: DIGOXIN
     Indication: CARDIAC DISORDER
     Dosage: 125MG EVERY OTHER DAY
  3. FUROSEMIDE. [Concomitant]
     Active Substance: FUROSEMIDE
     Indication: FLUID RETENTION
     Dosage: 40 MG, 2X/DAY
  4. OMEPRAZOLE. [Concomitant]
     Active Substance: OMEPRAZOLE
     Indication: GASTRIC DISORDER
     Dosage: 20 MG, 1X/DAY
  5. IRON [Concomitant]
     Active Substance: IRON
     Dosage: 65 MG, 2X/DAY
  6. TRACLEER [Concomitant]
     Active Substance: BOSENTAN
     Indication: LUNG DISORDER
     Dosage: 125 MG, 2X/DAY
  7. REVATIO [Suspect]
     Active Substance: SILDENAFIL CITRATE
     Dosage: 20MG TABLET, 4 TABLETS BY MOUTH 3 TIMES A DAY
     Route: 048
  8. VITAMIN C [Concomitant]
     Active Substance: ASCORBIC ACID
     Dosage: 500 MG, 1X/DAY
  9. VITAMIN B12 [Concomitant]
     Active Substance: CYANOCOBALAMIN
     Dosage: 1000 MG, 1X/DAY
  10. REVATIO [Suspect]
     Active Substance: SILDENAFIL CITRATE
     Dosage: 1 TABLET THREE TIMES A DAY
     Dates: start: 201601
  11. TREPROSTINIL [Concomitant]
     Active Substance: TREPROSTINIL
     Indication: LUNG DISORDER
     Dosage: 3;1 MG, 3; 2.5 MG, 3;0.25, 1 A 2 DAY
  12. FUROSEMIDE. [Concomitant]
     Active Substance: FUROSEMIDE
     Dosage: 40 MG, 1X/DAY
  13. POTASSIUM [Concomitant]
     Active Substance: POTASSIUM
     Dosage: 20 MG, 1X/DAY

REACTIONS (7)
  - Pericardial effusion [Recovered/Resolved]
  - Cardiac failure [Recovered/Resolved]
  - Expired product administered [Recovered/Resolved]
  - Malaise [Recovered/Resolved]
  - Blood pressure decreased [Recovered/Resolved]
  - Prescribed overdose [Recovered/Resolved]
  - Oedema [Recovered/Resolved]

NARRATIVE: CASE EVENT DATE: 2016
